FAERS Safety Report 18191558 (Version 4)
Quarter: 2020Q4

REPORT INFORMATION
  Report Type: Report from Study
  Country: US (occurrence: US)
  Receive Date: 20200825
  Receipt Date: 20201117
  Transmission Date: 20210113
  Serious: No
  Sender: FDA-Public Use
  Company Number: NVSC2020US232895

PATIENT
  Sex: Female

DRUGS (3)
  1. ENTRESTO [Suspect]
     Active Substance: SACUBITRIL\VALSARTAN
     Route: 048
  2. ENTRESTO [Suspect]
     Active Substance: SACUBITRIL\VALSARTAN
     Indication: PRODUCT USED FOR UNKNOWN INDICATION
     Dosage: 1 DF (24/26 MG), BID
     Route: 048
  3. ENTRESTO [Suspect]
     Active Substance: SACUBITRIL\VALSARTAN
     Dosage: 1 DF (49/51 MG), BID
     Route: 048

REACTIONS (10)
  - Sneezing [Unknown]
  - Incorrect dose administered [Unknown]
  - Lacrimation increased [Unknown]
  - Periorbital swelling [Unknown]
  - Renal pain [Recovered/Resolved]
  - Urine output decreased [Recovered/Resolved]
  - Depression [Unknown]
  - Chills [Unknown]
  - Nasopharyngitis [Unknown]
  - Hypersensitivity [Unknown]
